FAERS Safety Report 21926849 (Version 1)
Quarter: 2023Q1

REPORT INFORMATION
  Report Type: Spontaneous
  Country: US (occurrence: None)
  Receive Date: 20230127
  Receipt Date: 20230127
  Transmission Date: 20230418
  Serious: Yes (Life-Threatening, Disabling, Other)
  Sender: FDA-Public Use
  Company Number: None

PATIENT
  Age: 50 Year
  Sex: Male
  Weight: 74.25 kg

DRUGS (17)
  1. LEVAQUIN [Suspect]
     Active Substance: LEVOFLOXACIN
     Indication: Pneumonia
     Dosage: FREQUENCY : DAILY;?
     Route: 048
     Dates: start: 20221014, end: 20221024
  2. LISINOPRIL [Concomitant]
     Active Substance: LISINOPRIL
  3. METOPROLOL [Concomitant]
     Active Substance: METOPROLOL
  4. CIALIS [Concomitant]
     Active Substance: TADALAFIL
  5. ALA [Concomitant]
  6. COENZYME Q10 [Concomitant]
     Active Substance: DIETARY SUPPLEMENT\UBIDECARENONE
  7. VITAMIN E [Concomitant]
     Active Substance: .ALPHA.-TOCOPHEROL
  8. MAGNESIUM [Concomitant]
     Active Substance: MAGNESIUM
  9. KRILL OIL [Concomitant]
  10. NAC [Concomitant]
  11. MITOQ [Concomitant]
  12. L-Ergothioneine [Concomitant]
  13. VITAMIN B COMPLEX [Concomitant]
     Active Substance: CYANOCOBALAMIN\DEXPANTHENOL\NIACINAMIDE\PYRIDOXINE HYDROCHLORIDE\RIBOFLAVIN 5^-PHOSPHATE SODIUM\THIA
  14. HERBALS\TURMERIC [Concomitant]
     Active Substance: HERBALS\TURMERIC
  15. PQQ [Concomitant]
  16. Triple Joint [Concomitant]
  17. PROBIOTICS NOS [Concomitant]
     Active Substance: PROBIOTICS NOS

REACTIONS (8)
  - Tendonitis [None]
  - Neuropathy peripheral [None]
  - Muscle spasms [None]
  - Fatigue [None]
  - Anxiety [None]
  - Insomnia [None]
  - Myalgia [None]
  - Job dissatisfaction [None]

NARRATIVE: CASE EVENT DATE: 20221014
